FAERS Safety Report 4866723-5 (Version None)
Quarter: 2005Q4

REPORT INFORMATION
  Report Type: 
  Country: None (occurrence: None)
  Receive Date: 20051221
  Receipt Date: 20051213
  Transmission Date: 20060501
  Serious: Yes (Hospitalization, Other)
  Sender: FDA-Public Use
  Company Number: 2005-12-0602

PATIENT
  Age: 68 Year
  Sex: Female

DRUGS (4)
  1. PEG-INTRON [Suspect]
     Indication: HEPATITIS C
     Dosage: 80-20 MCG QW SUBCUTANEOUS
     Route: 058
     Dates: start: 20050511, end: 20050101
  2. PEG-INTRON [Suspect]
     Indication: HEPATITIS C
     Dosage: 80-20 MCG QW SUBCUTANEOUS
     Route: 058
     Dates: start: 20050101, end: 20051130
  3. PEG-INTRON [Suspect]
     Indication: HEPATITIS C
     Dosage: 80-20 MCG QW SUBCUTANEOUS
     Route: 058
     Dates: start: 20050511, end: 20051130
  4. REBETOL [Suspect]
     Indication: HEPATITIS C
     Dosage: 600 MG ORAL
     Route: 048
     Dates: start: 20050511, end: 20051130

REACTIONS (6)
  - ASTHENIA [None]
  - GRIP STRENGTH DECREASED [None]
  - INFECTION [None]
  - MUSCULOSKELETAL STIFFNESS [None]
  - NERVOUS SYSTEM DISORDER [None]
  - PYREXIA [None]
